FAERS Safety Report 7432412-6 (Version None)
Quarter: 2011Q2

REPORT INFORMATION
  Report Type: 
  Country: None (occurrence: None)
  Receive Date: 20110422
  Receipt Date: 20110419
  Transmission Date: 20111010
  Serious: Yes (Other)
  Sender: FDA-Public Use
  Company Number: JP-PFIZER INC-2011085780

PATIENT
  Age: 74 Year
  Sex: Male

DRUGS (2)
  1. LYRICA [Suspect]
     Indication: DIABETIC NEUROPATHY
     Dosage: 300 MG/DAY
     Route: 048
     Dates: start: 20101203
  2. LYRICA [Suspect]
     Indication: HYPOAESTHESIA
     Dosage: 175 MG, 2X/DAY
     Route: 048
     Dates: end: 20110417

REACTIONS (1)
  - PERIPHERAL CIRCULATORY FAILURE [None]
